FAERS Safety Report 6546769-1 (Version None)
Quarter: 2010Q1

REPORT INFORMATION
  Report Type: 
  Country: None (occurrence: None)
  Receive Date: 20100119
  Receipt Date: 20100107
  Transmission Date: 20100710
  Serious: Yes (Hospitalization)
  Sender: FDA-Public Use
  Company Number: 2010-0070

PATIENT
  Sex: Male

DRUGS (1)
  1. APOKYN [Suspect]
     Indication: PARKINSON'S DISEASE
     Dosage: (0.6 ML);  REDUCED DURING HOSPITALISATION

REACTIONS (3)
  - CARDIAC FAILURE CONGESTIVE [None]
  - COUGH [None]
  - MYOCARDIAL INFARCTION [None]
